FAERS Safety Report 20955562 (Version 15)
Quarter: 2022Q4

REPORT INFORMATION
  Report Type: Report from Study
  Country: FR (occurrence: None)
  Receive Date: 20220614
  Receipt Date: 20221026
  Transmission Date: 20230112
  Serious: Yes (Hospitalization)
  Sender: FDA-Public Use
  Company Number: FR-Eisai Medical Research-EC-2022-116832

PATIENT
  Age: 67 Year
  Sex: Male
  Weight: 85 kg

DRUGS (15)
  1. LENVATINIB [Suspect]
     Active Substance: LENVATINIB
     Indication: Prostate cancer metastatic
     Route: 048
     Dates: start: 20220518, end: 20220527
  2. LENVATINIB [Suspect]
     Active Substance: LENVATINIB
     Indication: Hormone-refractory prostate cancer
     Route: 048
     Dates: start: 20220615, end: 20220623
  3. LENVATINIB [Suspect]
     Active Substance: LENVATINIB
     Route: 048
     Dates: start: 20220805, end: 20220815
  4. PEMBROLIZUMAB [Suspect]
     Active Substance: PEMBROLIZUMAB
     Indication: Prostate cancer metastatic
     Route: 041
     Dates: start: 20220518, end: 20220518
  5. PEMBROLIZUMAB [Suspect]
     Active Substance: PEMBROLIZUMAB
     Indication: Hormone-refractory prostate cancer
     Route: 041
     Dates: start: 20220615, end: 20220615
  6. PEMBROLIZUMAB [Suspect]
     Active Substance: PEMBROLIZUMAB
     Route: 041
     Dates: start: 20220715
  7. TRIPTORELIN [Concomitant]
     Active Substance: TRIPTORELIN
     Route: 058
     Dates: start: 20160912
  8. DENOSUMAB [Concomitant]
     Active Substance: DENOSUMAB
     Dates: start: 20180207
  9. CALCIUM PHOSPHATE, DIBASIC, ANHYDROUS\MAGNESIUM GLYCEROPHOSPHATE\PHOSP [Concomitant]
     Active Substance: CALCIUM PHOSPHATE, DIBASIC, ANHYDROUS\MAGNESIUM GLYCEROPHOSPHATE\PHOSPHORIC ACID\SODIUM PHOSPHATE, D
     Dates: start: 20220428, end: 20220608
  10. PREDNISONE [Concomitant]
     Active Substance: PREDNISONE
     Dates: start: 20220428, end: 20220607
  11. RACECADOTRIL [Concomitant]
     Active Substance: RACECADOTRIL
     Dates: start: 20220428, end: 20220511
  12. ALFUZOSIN [Concomitant]
     Active Substance: ALFUZOSIN
     Dates: start: 20220428, end: 20220511
  13. CALCIUM\CHOLECALCIFEROL [Concomitant]
     Active Substance: CALCIUM\CHOLECALCIFEROL
     Dates: start: 20220428, end: 20220511
  14. MAGNESIUM PIDOLATE [Concomitant]
     Active Substance: MAGNESIUM PIDOLATE
     Dates: start: 20220428, end: 20220511
  15. SMECTA [Concomitant]
     Active Substance: MONTMORILLONITE
     Dates: start: 20220428, end: 20220511

REACTIONS (2)
  - Fatigue [Recovering/Resolving]
  - Dyspnoea [Recovering/Resolving]

NARRATIVE: CASE EVENT DATE: 20220524
